FAERS Safety Report 22035034 (Version 1)
Quarter: 2023Q1

REPORT INFORMATION
  Report Type: Spontaneous
  Country: US (occurrence: None)
  Receive Date: 20230224
  Receipt Date: 20230224
  Transmission Date: 20230418
  Serious: Yes (Death)
  Sender: FDA-Public Use
  Company Number: 2023A045291

PATIENT
  Sex: Male

DRUGS (2)
  1. BYDUREON [Suspect]
     Active Substance: EXENATIDE
     Route: 058
  2. BYDUREON BCISE [Concomitant]
     Active Substance: EXENATIDE
     Route: 058

REACTIONS (2)
  - Injury associated with device [Fatal]
  - Device malfunction [Unknown]
